FAERS Safety Report 9443570 (Version 4)
Quarter: 2013Q4

REPORT INFORMATION
  Report Type: Spontaneous
  Country: IT (occurrence: None)
  Receive Date: 20130802
  Receipt Date: 20131017
  Transmission Date: 20140711
  Serious: Yes (Hospitalization)
  Sender: FDA-Public Use
  Company Number: AUR-APL-2013-06443

PATIENT
  Age: 40 Year
  Sex: Male

DRUGS (2)
  1. CITALOPRAM(CITALOPRAM) [Suspect]
     Indication: DEPRESSION
     Dosage: (40 MG,TOTAL)
     Route: 048
     Dates: start: 20130621, end: 20130621
  2. LORAZEPAM [Suspect]
     Indication: PRODUCT USED FOR UNKNOWN INDICATION
     Dosage: (100 GTT,TOTAL)
     Route: 048
     Dates: start: 20130621, end: 20130621

REACTIONS (4)
  - Drug abuse [None]
  - Sopor [None]
  - Self injurious behaviour [None]
  - Intentional overdose [None]
